FAERS Safety Report 9472970 (Version 2)
Quarter: 2013Q3

REPORT INFORMATION
  Report Type: Spontaneous
  Country: US (occurrence: US)
  Receive Date: 20130823
  Receipt Date: 20130823
  Transmission Date: 20140515
  Serious: Yes (Death, Hospitalization)
  Sender: FDA-Public Use
  Company Number: US-BRISTOL-MYERS SQUIBB COMPANY-17290321

PATIENT
  Age: 29 Year
  Sex: Female

DRUGS (6)
  1. SPRYCEL [Suspect]
     Indication: CHRONIC MYELOID LEUKAEMIA
     Route: 048
     Dates: start: 20121201, end: 20121221
  2. SPRYCEL [Suspect]
     Indication: BLAST CELL PROLIFERATION
     Route: 048
     Dates: start: 20121201, end: 20121221
  3. DOXYCYCLINE [Concomitant]
  4. CIPROFLOXACIN [Concomitant]
  5. RISPERIDONE [Concomitant]
  6. VORICONAZOLE [Concomitant]

REACTIONS (2)
  - Malignant neoplasm progression [Fatal]
  - Lower gastrointestinal haemorrhage [Unknown]
